FAERS Safety Report 6790898-4 (Version None)
Quarter: 2010Q2

REPORT INFORMATION
  Report Type: 
  Country: None (occurrence: None)
  Receive Date: 20100624
  Receipt Date: 20100613
  Transmission Date: 20101027
  Serious: Yes (Hospitalization)
  Sender: FDA-Public Use
  Company Number: B0660852A

PATIENT
  Age: 51 Year
  Sex: Male
  Weight: 62.3 kg

DRUGS (1)
  1. MARAVIROC [Suspect]
     Indication: HIV INFECTION
     Dosage: 150MG PER DAY
     Route: 048
     Dates: start: 20090623

REACTIONS (2)
  - ABDOMINAL PAIN [None]
  - RECTAL HAEMORRHAGE [None]
